FAERS Safety Report 8033168-9 (Version None)
Quarter: 2012Q1

REPORT INFORMATION
  Report Type: 
  Country: None (occurrence: None)
  Receive Date: 20120110
  Receipt Date: 20120110
  Transmission Date: 20120608
  Serious: Yes (Hospitalization)
  Sender: FDA-Public Use
  Company Number: None

PATIENT
  Age: 37 Year
  Sex: Female
  Weight: 67.585 kg

DRUGS (1)
  1. CHANTIX [Suspect]
     Indication: SMOKING CESSATION THERAPY
     Dates: start: 20110407, end: 20110424

REACTIONS (7)
  - DEPRESSION [None]
  - PERSONALITY CHANGE [None]
  - ANGER [None]
  - CRYING [None]
  - WEIGHT INCREASED [None]
  - QUALITY OF LIFE DECREASED [None]
  - MOOD ALTERED [None]
